FAERS Safety Report 4267833-6 (Version None)
Quarter: 2004Q1

REPORT INFORMATION
  Report Type: 
  Country: None (occurrence: None)
  Receive Date: 20040109
  Receipt Date: 20031023
  Transmission Date: 20041129
  Serious: Yes (Hospitalization)
  Sender: FDA-Public Use
  Company Number: JP-GLAXOSMITHKLINE-B0313112A

PATIENT
  Age: 49 Year
  Sex: Female
  Weight: 30 kg

DRUGS (7)
  1. LAMIVUDINE [Suspect]
     Indication: HEPATIC CIRRHOSIS
     Dosage: 100MG ALTERNATE DAYS
     Route: 048
     Dates: start: 20030922, end: 20031023
  2. LEVOTHYROXINE SODIUM [Concomitant]
     Indication: HYPOTHYROIDISM
     Dosage: 75MCG PER DAY
     Route: 048
  3. VALPROATE SODIUM [Concomitant]
     Indication: EPILEPSY
     Dosage: 1200MG PER DAY
     Route: 048
  4. NIZATIDINE [Concomitant]
     Indication: GASTRIC ULCER
     Dosage: 300MG PER DAY
     Route: 048
  5. LIVACT [Concomitant]
     Indication: HYPOALBUMINAEMIA
     Dosage: 3Z PER DAY
     Route: 048
  6. FUROSEMIDE [Concomitant]
     Indication: ASCITES
     Dosage: 25MG PER DAY
     Route: 048
  7. SPIRONOLACTONE [Concomitant]
     Indication: ASCITES
     Dosage: 50MG PER DAY
     Route: 048

REACTIONS (1)
  - PANCYTOPENIA [None]
